FAERS Safety Report 5501259-X (Version None)
Quarter: 2007Q4

REPORT INFORMATION
  Report Type: 
  Country: None (occurrence: None)
  Receive Date: 20071029
  Receipt Date: 20071023
  Transmission Date: 20080405
  Serious: Yes (Hospitalization, Other)
  Sender: FDA-Public Use
  Company Number: US-MERCK-0704USA00284

PATIENT
  Age: 50 Year
  Sex: Female
  Weight: 70 kg

DRUGS (5)
  1. FOSAMAX [Suspect]
     Indication: HIP FRACTURE
     Route: 048
     Dates: start: 19981001
  2. FOSAMAX [Suspect]
     Route: 048
  3. FOSAMAX [Suspect]
     Route: 048
     Dates: start: 20000428
  4. ESTROGENS (UNSPECIFIED) [Concomitant]
     Route: 065
  5. ACTONEL [Concomitant]
     Route: 065
     Dates: start: 19940101

REACTIONS (29)
  - ABDOMINAL PAIN [None]
  - ACQUIRED OESOPHAGEAL WEB [None]
  - ANAEMIA [None]
  - ANXIETY [None]
  - BONE PAIN [None]
  - BUNDLE BRANCH BLOCK LEFT [None]
  - CARPAL TUNNEL SYNDROME [None]
  - CONSTIPATION [None]
  - DEHYDRATION [None]
  - DEPRESSION [None]
  - DYSPEPSIA [None]
  - DYSPHAGIA [None]
  - DYSPHONIA [None]
  - EROSIVE OESOPHAGITIS [None]
  - FIBROMYALGIA [None]
  - HIATUS HERNIA [None]
  - LYMPHADENITIS [None]
  - MUSCULOSKELETAL CHEST PAIN [None]
  - MUSCULOSKELETAL PAIN [None]
  - NECK PAIN [None]
  - NERVE COMPRESSION [None]
  - OSTEOMYELITIS [None]
  - OSTEONECROSIS [None]
  - PYELONEPHRITIS [None]
  - SINUS DISORDER [None]
  - STRESS FRACTURE [None]
  - SUPRAVENTRICULAR TACHYCARDIA [None]
  - TUBERCULOSIS SKIN TEST POSITIVE [None]
  - WOLFF-PARKINSON-WHITE SYNDROME [None]
